FAERS Safety Report 7573597-0 (Version None)
Quarter: 2011Q2

REPORT INFORMATION
  Report Type: 
  Country: None (occurrence: None)
  Receive Date: 20110627
  Receipt Date: 20110624
  Transmission Date: 20111010
  Serious: Yes (Hospitalization)
  Sender: FDA-Public Use
  Company Number: IT-TEVA-287834ISR

PATIENT
  Sex: Female
  Weight: 60 kg

DRUGS (5)
  1. DEXAMETHASONE [Suspect]
     Indication: MULTIPLE MYELOMA
     Dosage: 20 MILLIGRAM;
     Dates: start: 20110509, end: 20110605
  2. ENOXAPARINA [Concomitant]
     Indication: THROMBOSIS PROPHYLAXIS
     Route: 058
     Dates: start: 20091112
  3. LENALIDOMIDE [Suspect]
     Indication: MULTIPLE MYELOMA
     Dosage: 15 MILLIGRAM;
     Route: 048
     Dates: start: 20110509, end: 20110529
  4. LENALIDOMIDE [Suspect]
     Dosage: 25 MILLIGRAM;
     Route: 048
     Dates: start: 20091122
  5. DEXAMETHASONE [Suspect]
     Dosage: 40 MILLIGRAM;
     Dates: start: 20091112

REACTIONS (1)
  - ATRIAL FIBRILLATION [None]
